FAERS Safety Report 11610625 (Version 35)
Quarter: 2022Q1

REPORT INFORMATION
  Report Type: Other
  Country: CA (occurrence: None)
  Receive Date: 20151008
  Receipt Date: 20220215
  Transmission Date: 20220423
  Serious: Yes (Hospitalization, Other)
  Sender: FDA-Public Use
  Company Number: CA-ROCHE-1157939

PATIENT
  Age: 42 Year
  Sex: Male
  Weight: 108.9 kg

DRUGS (25)
  1. ACTEMRA [Suspect]
     Active Substance: TOCILIZUMAB
     Indication: Rheumatoid arthritis
     Route: 042
     Dates: start: 20121019, end: 20170208
  2. ACTEMRA [Suspect]
     Active Substance: TOCILIZUMAB
     Route: 042
     Dates: start: 20131115
  3. ACTEMRA [Suspect]
     Active Substance: TOCILIZUMAB
     Route: 042
     Dates: start: 20140820
  4. ACTEMRA [Suspect]
     Active Substance: TOCILIZUMAB
     Dosage: HOLD
     Route: 042
  5. ACTEMRA [Suspect]
     Active Substance: TOCILIZUMAB
     Route: 042
     Dates: start: 20170308, end: 20180615
  6. ACTEMRA [Suspect]
     Active Substance: TOCILIZUMAB
     Route: 042
     Dates: start: 20180723, end: 20210716
  7. RITUXAN [Suspect]
     Active Substance: RITUXIMAB
     Indication: Rheumatoid arthritis
     Route: 042
     Dates: start: 20090331, end: 20090414
  8. PREDNISONE [Suspect]
     Active Substance: PREDNISONE
     Indication: Product used for unknown indication
     Route: 065
  9. SOLIRIS [Suspect]
     Active Substance: ECULIZUMAB
     Indication: Product used for unknown indication
     Route: 065
  10. ILARIS [Suspect]
     Active Substance: CANAKINUMAB
     Indication: Rheumatoid arthritis
     Route: 065
  11. ILARIS [Suspect]
     Active Substance: CANAKINUMAB
     Indication: Still^s disease
  12. ACTONEL [Concomitant]
     Active Substance: RISEDRONATE SODIUM
  13. FOLIC ACID [Concomitant]
     Active Substance: FOLIC ACID
  14. TYLENOL WITH CODEINE [Concomitant]
     Active Substance: ACETAMINOPHEN\CODEINE PHOSPHATE
  15. PERCOCET [Concomitant]
     Active Substance: ACETAMINOPHEN\OXYCODONE HYDROCHLORIDE
  16. METHOTREXATE [Concomitant]
     Active Substance: METHOTREXATE
  17. ASPIRIN [Concomitant]
     Active Substance: ASPIRIN
  18. ATORVASTATIN [Concomitant]
     Active Substance: ATORVASTATIN
     Indication: Blood cholesterol
  19. EZETIMIBE [Concomitant]
     Active Substance: EZETIMIBE
  20. FOLIC ACID [Concomitant]
     Active Substance: FOLIC ACID
  21. ACETAMINOPHEN\OXYCODONE HYDROCHLORIDE [Concomitant]
     Active Substance: ACETAMINOPHEN\OXYCODONE HYDROCHLORIDE
  22. PREGABALIN [Concomitant]
     Active Substance: PREGABALIN
     Indication: Neuralgia
  23. RISEDRONATE SODIUM [Concomitant]
     Active Substance: RISEDRONATE SODIUM
  24. ZOPICLONE [Concomitant]
     Active Substance: ZOPICLONE
  25. MODERNA COVID-19 VACCINE [Concomitant]
     Active Substance: ELASOMERAN
     Dates: start: 20220127

REACTIONS (33)
  - Limb injury [Recovered/Resolved]
  - Hand fracture [Unknown]
  - Weight increased [Unknown]
  - Cellulitis [Not Recovered/Not Resolved]
  - Cellulitis [Not Recovered/Not Resolved]
  - Foot fracture [Unknown]
  - Hypertension [Unknown]
  - Device dislocation [Unknown]
  - Arthritis infective [Unknown]
  - Pyrexia [Unknown]
  - Headache [Recovered/Resolved]
  - Blood pressure increased [Unknown]
  - Injection site extravasation [Unknown]
  - Heart rate decreased [Unknown]
  - Infusion related reaction [Unknown]
  - Blood pressure increased [Unknown]
  - Fluid retention [Unknown]
  - Anxiety [Recovering/Resolving]
  - Influenza [Not Recovered/Not Resolved]
  - Headache [Not Recovered/Not Resolved]
  - Insomnia [Recovering/Resolving]
  - Blood pressure systolic increased [Unknown]
  - Drug ineffective [Unknown]
  - Hyperhidrosis [Not Recovered/Not Resolved]
  - Vein disorder [Unknown]
  - Localised infection [Unknown]
  - Wound infection [Not Recovered/Not Resolved]
  - Weight decreased [Unknown]
  - Mobility decreased [Unknown]
  - Neuralgia [Unknown]
  - Hand fracture [Unknown]
  - Foot fracture [Unknown]
  - Fall [Unknown]

NARRATIVE: CASE EVENT DATE: 20121026
